FAERS Safety Report 24356863 (Version 1)
Quarter: 2024Q3

REPORT INFORMATION
  Report Type: Spontaneous
  Country: US (occurrence: US)
  Receive Date: 20240924
  Receipt Date: 20240924
  Transmission Date: 20241017
  Serious: Yes (Hospitalization, Other)
  Sender: NOVARTIS
  Company Number: US-002147023-NVSC2024US187393

PATIENT
  Sex: Female
  Weight: 65.7 kg

DRUGS (6)
  1. RIBOCICLIB [Suspect]
     Active Substance: RIBOCICLIB
     Indication: Bone cancer
     Dosage: UNK
     Route: 065
     Dates: start: 20230811
  2. RIBOCICLIB [Suspect]
     Active Substance: RIBOCICLIB
     Indication: Breast cancer metastatic
  3. FULVESTRANT [Suspect]
     Active Substance: FULVESTRANT
     Indication: Breast cancer metastatic
     Dosage: UNK, QMO
     Route: 065
     Dates: start: 20230811
  4. IBRANCE [Suspect]
     Active Substance: PALBOCICLIB
     Indication: Breast cancer female
     Dosage: UNK (TAKE 1 TABLET (100 MG TOTAL) BY MOUTH DAILY FOR 21 DOSES. TAKE ON DAYS 1 THROUGH 21 (FOLLOWED B
     Route: 048
     Dates: start: 20240820, end: 20240821
  5. IBRANCE [Suspect]
     Active Substance: PALBOCICLIB
     Dosage: 100 MG (TAKE 1 TABLET (100 MG TOTAL) BY MOUTH DAILY FOR 84 DOSES. TAKE ON DAYS 1 THROUGH 21 (FOLLOWE
     Route: 048
     Dates: start: 20240823
  6. ELIQUIS [Concomitant]
     Active Substance: APIXABAN
     Indication: Product used for unknown indication
     Dosage: 5 MG (MAY RESUME AFTER RESULTS OF CHEST XRAY)
     Route: 065
     Dates: start: 20240628

REACTIONS (5)
  - Pneumonia [Unknown]
  - Metastases to liver [Unknown]
  - White blood cell count decreased [Unknown]
  - Nausea [Unknown]
  - Decreased appetite [Unknown]
